FAERS Safety Report 11992700 (Version 2)
Quarter: 2016Q1

REPORT INFORMATION
  Report Type: Spontaneous
  Country: US (occurrence: US)
  Receive Date: 20160203
  Receipt Date: 20160320
  Transmission Date: 20160526
  Serious: Yes (Hospitalization, Other)
  Sender: FDA-Public Use
  Company Number: US-009507513-1602USA000327

PATIENT
  Age: 10 Year
  Sex: Female

DRUGS (1)
  1. TEMODAR [Suspect]
     Active Substance: TEMOZOLOMIDE
     Indication: BRAIN STEM GLIOMA
     Dosage: 90 MG, QD
     Dates: start: 20151116, end: 20151224

REACTIONS (3)
  - Myelodysplastic syndrome [Recovering/Resolving]
  - Off label use [Unknown]
  - Gastritis [Recovered/Resolved]

NARRATIVE: CASE EVENT DATE: 20151116
